FAERS Safety Report 4387764-0 (Version None)
Quarter: 2004Q2

REPORT INFORMATION
  Report Type: 
  Country: None (occurrence: None)
  Receive Date: 20040625
  Receipt Date: 20040621
  Transmission Date: 20050107
  Serious: Yes (Hospitalization)
  Sender: FDA-Public Use
  Company Number: 2004CG01189

PATIENT
  Sex: Female

DRUGS (3)
  1. MOPRAL [Suspect]
     Dates: end: 20040528
  2. OFLOCET [Suspect]
     Indication: PNEUMONIA
     Dates: end: 20040520
  3. CEFTRIAXONE [Suspect]
     Indication: PNEUMONIA
     Dates: end: 20040521

REACTIONS (3)
  - AGRANULOCYTOSIS [None]
  - LEUKOPENIA [None]
  - PNEUMONIA [None]
